FAERS Safety Report 12134668 (Version 1)
Quarter: 2016Q1

REPORT INFORMATION
  Report Type: Spontaneous
  Country: US (occurrence: US)
  Receive Date: 20160301
  Receipt Date: 20160301
  Transmission Date: 20160526
  Serious: Yes (Other)
  Sender: FDA-Public Use
  Company Number: GXBR2016US000781

PATIENT
  Sex: Female

DRUGS (1)
  1. METOCLOPRAMIDE TABLETS USP [Suspect]
     Active Substance: METOCLOPRAMIDE
     Indication: PRODUCT USED FOR UNKNOWN INDICATION
     Dosage: UNK DF, UNK
     Route: 065
     Dates: start: 200108, end: 201001

REACTIONS (3)
  - Tremor [Unknown]
  - Tardive dyskinesia [Unknown]
  - Dyskinesia [Unknown]
